FAERS Safety Report 7333314-6 (Version None)
Quarter: 2011Q1

REPORT INFORMATION
  Report Type: 
  Country: None (occurrence: None)
  Receive Date: 20110304
  Receipt Date: 20110225
  Transmission Date: 20110831
  Serious: Yes (Other)
  Sender: FDA-Public Use
  Company Number: US-RB-017077-10

PATIENT
  Age: 37 Year
  Sex: Female

DRUGS (3)
  1. VICODIN [Suspect]
     Indication: PRODUCT USED FOR UNKNOWN INDICATION
     Dosage: UNKNOWN DOSING DETAILS
     Route: 065
  2. SUBOXONE [Suspect]
     Indication: DRUG DEPENDENCE
     Dosage: TAKES TOTAL 24 MG DAILY DOSE BETWEEN TABLET AND FILM
     Route: 060
     Dates: start: 20101101
  3. SUBOXONE [Suspect]
     Indication: DRUG DEPENDENCE
     Route: 065

REACTIONS (14)
  - PRE-EXISTING CONDITION IMPROVED [None]
  - ARTHRALGIA [None]
  - JOINT STIFFNESS [None]
  - NEUROPATHY PERIPHERAL [None]
  - HYPOAESTHESIA [None]
  - VOMITING [None]
  - FATIGUE [None]
  - DRUG DEPENDENCE [None]
  - ROAD TRAFFIC ACCIDENT [None]
  - SUBSTANCE ABUSE [None]
  - OVERDOSE [None]
  - NAUSEA [None]
  - STRESS [None]
  - SUICIDAL IDEATION [None]
